FAERS Safety Report 12660572 (Version 2)
Quarter: 2016Q3

REPORT INFORMATION
  Report Type: Spontaneous
  Country: US (occurrence: US)
  Receive Date: 20160817
  Receipt Date: 20160901
  Transmission Date: 20161109
  Serious: No
  Sender: FDA-Public Use
  Company Number: US-RELYPSA-RLY2016000478

PATIENT
  Sex: Male

DRUGS (14)
  1. FUROSEMIDE. [Concomitant]
     Active Substance: FUROSEMIDE
  2. ASPIRIN                            /00002701/ [Concomitant]
     Active Substance: ASPIRIN
  3. POTASSIUM [Concomitant]
     Active Substance: POTASSIUM
  4. PRILOSEC [Concomitant]
     Active Substance: OMEPRAZOLE MAGNESIUM
  5. SODIUM POLYSTYRENE SULFONATE. [Concomitant]
     Active Substance: SODIUM POLYSTYRENE SULFONATE
  6. CALCITRIOL. [Concomitant]
     Active Substance: CALCITRIOL
  7. LOSARTAN. [Concomitant]
     Active Substance: LOSARTAN
  8. VELTASSA [Suspect]
     Active Substance: PATIROMER
     Indication: HYPERKALAEMIA
     Dosage: 8.4 G, QD
     Route: 048
  9. CHLORTHALIDONE. [Concomitant]
     Active Substance: CHLORTHALIDONE
  10. PRAVASTATIN. [Concomitant]
     Active Substance: PRAVASTATIN
  11. DOXAZOSIN MESYLATE. [Concomitant]
     Active Substance: DOXAZOSIN MESYLATE
  12. LANTUS [Concomitant]
     Active Substance: INSULIN GLARGINE
  13. NORVASC [Concomitant]
     Active Substance: AMLODIPINE BESYLATE
  14. GLIPIZIDE. [Concomitant]
     Active Substance: GLIPIZIDE

REACTIONS (1)
  - Peripheral swelling [Not Recovered/Not Resolved]
